FAERS Safety Report 8458719 (Version 31)
Quarter: 2017Q1

REPORT INFORMATION
  Report Type: Report from Study
  Country: CA (occurrence: CA)
  Receive Date: 20120314
  Receipt Date: 20170310
  Transmission Date: 20170429
  Serious: Yes (Other)
  Sender: FDA-Public Use
  Company Number: CA-ROCHE-1045769

PATIENT
  Age: 39 Year
  Sex: Female
  Weight: 63 kg

DRUGS (10)
  1. ACTEMRA [Suspect]
     Active Substance: TOCILIZUMAB
     Indication: RHEUMATOID ARTHRITIS
     Route: 042
     Dates: start: 20111228
  2. PLAQUENIL [Concomitant]
     Active Substance: HYDROXYCHLOROQUINE SULFATE
     Route: 048
  3. TRAMADOL HYDROCHLORIDE. [Suspect]
     Active Substance: TRAMADOL HYDROCHLORIDE
     Indication: PRODUCT USED FOR UNKNOWN INDICATION
     Route: 065
     Dates: end: 2016
  4. SYNTHROID [Concomitant]
     Active Substance: LEVOTHYROXINE SODIUM
  5. ACTEMRA [Suspect]
     Active Substance: TOCILIZUMAB
     Route: 042
     Dates: start: 20120202
  6. SIMPONI [Concomitant]
     Active Substance: GOLIMUMAB
     Route: 058
  7. CELEBREX [Concomitant]
     Active Substance: CELECOXIB
     Route: 048
  8. CYMBALTA [Concomitant]
     Active Substance: DULOXETINE HYDROCHLORIDE
     Route: 048
  9. ACTEMRA [Suspect]
     Active Substance: TOCILIZUMAB
     Route: 042
     Dates: start: 20150313
  10. CELEBREX [Concomitant]
     Active Substance: CELECOXIB
     Route: 048
     Dates: end: 2013

REACTIONS (39)
  - Productive cough [Unknown]
  - Eye inflammation [Unknown]
  - Lower respiratory tract infection [Not Recovered/Not Resolved]
  - Weight increased [Not Recovered/Not Resolved]
  - Weight decreased [Recovering/Resolving]
  - Pruritus [Recovering/Resolving]
  - Rash generalised [Recovering/Resolving]
  - Cough [Recovering/Resolving]
  - Limb mass [Not Recovered/Not Resolved]
  - Electrocardiogram abnormal [Unknown]
  - Loss of consciousness [Recovered/Resolved]
  - Nasopharyngitis [Not Recovered/Not Resolved]
  - Myalgia [Unknown]
  - Weight decreased [Not Recovered/Not Resolved]
  - Activities of daily living impaired [Not Recovered/Not Resolved]
  - Dyspepsia [Recovered/Resolved]
  - Throat irritation [Unknown]
  - Rhinorrhoea [Recovered/Resolved]
  - Arthralgia [Not Recovered/Not Resolved]
  - Drug hypersensitivity [Unknown]
  - Cystitis [Unknown]
  - Pyrexia [Recovered/Resolved]
  - Nausea [Recovering/Resolving]
  - Fatigue [Not Recovered/Not Resolved]
  - Laryngitis [Not Recovered/Not Resolved]
  - Nasopharyngitis [Not Recovered/Not Resolved]
  - Neuralgia [Unknown]
  - Cough [Recovered/Resolved]
  - Pain [Not Recovered/Not Resolved]
  - Limb mass [Unknown]
  - Pain in extremity [Not Recovered/Not Resolved]
  - Drug ineffective [Unknown]
  - Hypotension [Unknown]
  - Haemoptysis [Recovered/Resolved]
  - Abdominal pain [Recovered/Resolved]
  - Arthralgia [Unknown]
  - Oral mucosal blistering [Unknown]
  - Bursitis [Not Recovered/Not Resolved]
  - Trigger finger [Unknown]

NARRATIVE: CASE EVENT DATE: 20120209
